FAERS Safety Report 6405582-6 (Version None)
Quarter: 2009Q4

REPORT INFORMATION
  Report Type: 
  Country: None (occurrence: None)
  Receive Date: 20091019
  Receipt Date: 20091008
  Transmission Date: 20100525
  Serious: Yes (Hospitalization)
  Sender: FDA-Public Use
  Company Number: JP-JNJFOC-20091003946

PATIENT
  Sex: Female
  Weight: 60 kg

DRUGS (11)
  1. DOXORUBICIN HCL [Suspect]
     Dosage: COURSE 2
     Route: 042
     Dates: start: 20090610, end: 20090716
  2. DOXORUBICIN HCL [Suspect]
     Indication: OVARIAN CANCER RECURRENT
     Dosage: COURSE 1
     Route: 042
     Dates: start: 20090610, end: 20090716
  3. ALENDRONATE SODIUM [Concomitant]
     Route: 048
  4. OMEPRAZOLE [Concomitant]
     Route: 048
  5. ATORVASTATIN CALCIUM [Concomitant]
     Route: 048
  6. PREDNISOLONE [Concomitant]
     Route: 048
  7. AMLODIPINE BESYLATE [Concomitant]
     Route: 048
  8. MECOBALAMIN [Concomitant]
     Route: 048
  9. TOCOPHEROL CONCENTRATE CAP [Concomitant]
     Route: 048
  10. CLONAZEPAM [Concomitant]
     Route: 048
  11. INDOMETHACIN [Concomitant]
     Route: 061

REACTIONS (1)
  - INTERSTITIAL LUNG DISEASE [None]
